FAERS Safety Report 4353263-5 (Version None)
Quarter: 2004Q2

REPORT INFORMATION
  Report Type: 
  Country: None (occurrence: None)
  Receive Date: 20040503
  Receipt Date: 20040503
  Transmission Date: 20050107
  Serious: No
  Sender: FDA-Public Use
  Company Number: None

PATIENT
  Age: 56 Year
  Sex: Male
  Weight: 81.3 kg

DRUGS (9)
  1. INTEGRILIN [Suspect]
     Indication: ANTIPLATELET THERAPY
     Dosage: (2) 7.3 ML BOLUSES/13CC/HR IV
     Route: 042
     Dates: start: 20040416
  2. HEPARIN [Suspect]
     Dosage: 4000 UNITS IV
     Route: 042
  3. FENTANYL [Concomitant]
  4. MIDAZOLAM HCL [Concomitant]
  5. NITROGLYCERIN [Concomitant]
  6. CEFAZOLIN [Concomitant]
  7. ASPIRIN [Concomitant]
  8. PLAVIX [Concomitant]
  9. PEPCID [Concomitant]

REACTIONS (2)
  - HEART RATE DECREASED [None]
  - POST PROCEDURAL HAEMORRHAGE [None]
